FAERS Safety Report 6742597-2 (Version None)
Quarter: 2010Q2

REPORT INFORMATION
  Report Type: 
  Country: None (occurrence: None)
  Receive Date: 20100524
  Receipt Date: 20100412
  Transmission Date: 20101027
  Serious: No
  Sender: FDA-Public Use
  Company Number: ACO_00687_2010

PATIENT
  Sex: Female
  Weight: 61.6892 kg

DRUGS (7)
  1. AMPYRA [Suspect]
     Indication: MULTIPLE SCLEROSIS
     Dosage: (10 MG BID ORAL) ; (10 MG QD ORAL)
     Route: 048
     Dates: start: 20100323, end: 20100101
  2. AMPYRA [Suspect]
     Indication: MULTIPLE SCLEROSIS
     Dosage: (10 MG BID ORAL) ; (10 MG QD ORAL)
     Route: 048
     Dates: start: 20100101
  3. NEURONTIN [Concomitant]
  4. CYMBALTA [Concomitant]
  5. ACYCLOVIR [Suspect]
  6. SOMA [Concomitant]
  7. COPAXONE [Concomitant]

REACTIONS (4)
  - BALANCE DISORDER [None]
  - CONDITION AGGRAVATED [None]
  - INAPPROPRIATE SCHEDULE OF DRUG ADMINISTRATION [None]
  - VERTIGO [None]
